FAERS Safety Report 17929450 (Version 1)
Quarter: 2020Q2

REPORT INFORMATION
  Report Type: Spontaneous
  Country: US (occurrence: US)
  Receive Date: 20200623
  Receipt Date: 20200623
  Transmission Date: 20200714
  Serious: No
  Sender: FDA-Public Use
  Company Number: US-ALLERGAN-1929359US

PATIENT

DRUGS (1)
  1. KYBELLA [Suspect]
     Active Substance: DEOXYCHOLIC ACID
     Indication: FAT TISSUE INCREASED
     Dosage: ACTUAL: 0.2 ML PER INJECTION SITE, SPACED 1 CM APART
     Route: 058

REACTIONS (2)
  - Facial asymmetry [Unknown]
  - Nerve injury [Unknown]

NARRATIVE: CASE EVENT DATE: 201906
